FAERS Safety Report 9882726 (Version 2)
Quarter: 2014Q1

REPORT INFORMATION
  Report Type: Spontaneous
  Country: RU (occurrence: RU)
  Receive Date: 20140207
  Receipt Date: 20140207
  Transmission Date: 20141002
  Serious: Yes (Death)
  Sender: FDA-Public Use
  Company Number: RU-BIOMARINAP-RU-2013-102475

PATIENT
  Sex: Male

DRUGS (2)
  1. NAGLAZYME [Suspect]
     Indication: MUCOPOLYSACCHARIDOSIS VI
     Dosage: UNK
     Dates: start: 201301
  2. NAGLAZYME [Suspect]
     Dosage: 20 ML, QW
     Route: 041
     Dates: start: 201309

REACTIONS (2)
  - Pneumonia [Fatal]
  - Cardiopulmonary failure [Unknown]
